FAERS Safety Report 8696110 (Version 2)
Quarter: 2012Q4

REPORT INFORMATION
  Report Type: 
  Country: US (occurrence: US)
  Receive Date: 20120801
  Receipt Date: 20120830
  Transmission Date: 20130627
  Serious: No
  Sender: FDA-Public Use
  Company Number: US-B.I. PHARMACEUTICALS,INC./RIDGEFIELD-2012-BP-16240BP

PATIENT
  Age: 72 None
  Sex: Female

DRUGS (4)
  1. PRADAXA [Suspect]
     Indication: ATRIAL FIBRILLATION
     Dosage: 300 mg
     Route: 048
     Dates: start: 20110831, end: 20110916
  2. LISINOPRIL [Concomitant]
     Indication: HYPERTENSION
     Dates: start: 20120511
  3. ATENOLOL [Concomitant]
     Indication: HYPERTENSION
  4. COUMADIN [Concomitant]
     Indication: ATRIAL FIBRILLATION
     Dates: start: 1995

REACTIONS (1)
  - Condition aggravated [Not Recovered/Not Resolved]
